FAERS Safety Report 10130358 (Version 2)
Quarter: 2014Q2

REPORT INFORMATION
  Report Type: Spontaneous
  Country: US (occurrence: US)
  Receive Date: 20140428
  Receipt Date: 20140502
  Transmission Date: 20141212
  Serious: Yes (Disabling)
  Sender: FDA-Public Use
  Company Number: US-009507513-1404USA011644

PATIENT
  Age: 64 Year
  Sex: Male

DRUGS (4)
  1. PEGINTRON [Suspect]
     Dosage: UNK, POWDER VIALS WITH SYRINGE
     Dates: start: 2003
  2. PEGINTRON [Suspect]
     Dosage: UNK, REDIPEN
     Dates: start: 2014
  3. REBETOL [Concomitant]
     Dosage: UNK
     Route: 048
     Dates: start: 2014
  4. OLYSIO [Concomitant]
     Dosage: UNK
     Dates: start: 2014

REACTIONS (6)
  - Impaired work ability [Recovered/Resolved]
  - Malaise [Recovered/Resolved]
  - Blood urine present [Recovered/Resolved]
  - Product quality issue [Unknown]
  - Fatigue [Unknown]
  - Mood swings [Unknown]
